FAERS Safety Report 6912179-8 (Version None)
Quarter: 2010Q3

REPORT INFORMATION
  Report Type: 
  Country: None (occurrence: None)
  Receive Date: 20100806
  Receipt Date: 20080211
  Transmission Date: 20110219
  Serious: Yes (Other)
  Sender: FDA-Public Use
  Company Number: US-PFIZER INC-2007107809

PATIENT
  Sex: Female
  Weight: 43.181 kg

DRUGS (2)
  1. PHENYTOIN [Suspect]
     Indication: CONVULSION
  2. ALL OTHER THERAPEUTIC PRODUCTS [Concomitant]

REACTIONS (1)
  - CONVULSION [None]
